FAERS Safety Report 18862848 (Version 1)
Quarter: 2021Q1

REPORT INFORMATION
  Report Type: Spontaneous
  Country: FR (occurrence: FR)
  Receive Date: 20210208
  Receipt Date: 20210208
  Transmission Date: 20210420
  Serious: Yes (Hospitalization)
  Sender: FDA-Public Use
  Company Number: FR-TEVA-2021-FR-1876721

PATIENT
  Age: 58 Year
  Weight: 76 kg

DRUGS (4)
  1. FLUOROURACILE [Suspect]
     Active Substance: FLUOROURACIL
     Indication: INSULINOMA
     Route: 042
     Dates: start: 20201116, end: 20201229
  2. PROGLICEM [Concomitant]
     Active Substance: DIAZOXIDE
  3. SOMATOSTATINE [Concomitant]
     Active Substance: SOMATOSTATIN
     Route: 058
  4. STREPTOZOCINE [Suspect]
     Active Substance: STREPTOZOCIN
     Indication: INSULINOMA
     Route: 042
     Dates: start: 20201218, end: 20201229

REACTIONS (2)
  - Oedema peripheral [Recovered/Resolved]
  - Photosensitivity reaction [Recovered/Resolved]

NARRATIVE: CASE EVENT DATE: 20201223
